FAERS Safety Report 13088924 (Version 1)
Quarter: 2016Q4

REPORT INFORMATION
  Report Type: Spontaneous
  Country: US (occurrence: US)
  Receive Date: 20161231
  Receipt Date: 20161231
  Transmission Date: 20170207
  Serious: Yes (Other)
  Sender: FDA-Public Use
  Company Number: None

PATIENT
  Age: 53 Year
  Sex: Male
  Weight: 76.5 kg

DRUGS (3)
  1. VITAMIN D [Concomitant]
     Active Substance: CHOLECALCIFEROL
  2. VITAMIN B12 [Concomitant]
     Active Substance: CYANOCOBALAMIN
  3. NAPROXEN SODIUM 550 MG [Suspect]
     Active Substance: NAPROXEN SODIUM
     Indication: MUSCULOSKELETAL PAIN
     Dosage: ?          QUANTITY:60 TABLET(S);?
     Route: 048
     Dates: start: 20161223, end: 20161224

REACTIONS (1)
  - Depression [None]

NARRATIVE: CASE EVENT DATE: 20161223
